FAERS Safety Report 12233224 (Version 3)
Quarter: 2016Q3

REPORT INFORMATION
  Report Type: Report from Study
  Country: US (occurrence: US)
  Receive Date: 20160404
  Receipt Date: 20160725
  Transmission Date: 20161109
  Serious: No
  Sender: FDA-Public Use
  Company Number: US-AMGEN-USASL2016039206

PATIENT
  Age: 68 Year
  Sex: Female

DRUGS (3)
  1. ENBREL [Suspect]
     Active Substance: ETANERCEPT
     Indication: PSORIASIS
     Dosage: UNK
     Route: 065
  2. ENBREL [Suspect]
     Active Substance: ETANERCEPT
     Indication: PSORIATIC ARTHROPATHY
     Dosage: UNK
     Route: 065
  3. ENBREL [Suspect]
     Active Substance: ETANERCEPT
     Dosage: 50 MG, UNK
     Route: 065
     Dates: start: 201604

REACTIONS (6)
  - Mycobacterium tuberculosis complex test positive [Unknown]
  - Hair texture abnormal [Unknown]
  - Pain [Unknown]
  - Alopecia [Recovered/Resolved]
  - Adverse event [Unknown]
  - Spider vein [Unknown]

NARRATIVE: CASE EVENT DATE: 2016
